FAERS Safety Report 4629247-6 (Version None)
Quarter: 2005Q2

REPORT INFORMATION
  Report Type: 
  Country: None (occurrence: None)
  Receive Date: 20050404
  Receipt Date: 20050404
  Transmission Date: 20051028
  Serious: No
  Sender: FDA-Public Use
  Company Number: None

PATIENT

DRUGS (1)
  1. TIMOPTIC [Suspect]
     Indication: GLAUCOMA
     Dosage: 1 GTT OU QD
     Route: 047

REACTIONS (3)
  - APPLICATION SITE INFLAMMATION [None]
  - EYE INFLAMMATION [None]
  - PHARMACEUTICAL PRODUCT COMPLAINT [None]
